FAERS Safety Report 7700292-7 (Version None)
Quarter: 2011Q3

REPORT INFORMATION
  Report Type: 
  Country: None (occurrence: None)
  Receive Date: 20110816
  Receipt Date: 20110802
  Transmission Date: 20111222
  Serious: Yes (Hospitalization)
  Sender: FDA-Public Use
  Company Number: TPA2011A04601

PATIENT
  Age: 84 Year
  Sex: Female
  Weight: 71.6683 kg

DRUGS (2)
  1. ACTOS [Suspect]
     Indication: TYPE 2 DIABETES MELLITUS
     Dosage: 30 MG, 1 IN 1 D, PER ORAL 45 MG, 1 IN 1 D, PER ORAL
     Route: 048
     Dates: start: 20110701
  2. ACTOS [Suspect]
     Indication: TYPE 2 DIABETES MELLITUS
     Dosage: 30 MG, 1 IN 1 D, PER ORAL 45 MG, 1 IN 1 D, PER ORAL
     Route: 048
     Dates: end: 20110701

REACTIONS (7)
  - HERPES ZOSTER [None]
  - PAIN [None]
  - DRUG INTERACTION [None]
  - DIABETES MELLITUS INADEQUATE CONTROL [None]
  - TACHYCARDIA [None]
  - EAR PAIN [None]
  - CONDITION AGGRAVATED [None]
